FAERS Safety Report 18637967 (Version 2)
Quarter: 2021Q2

REPORT INFORMATION
  Report Type: Report from Study
  Country: US (occurrence: US)
  Receive Date: 20201219
  Receipt Date: 20210609
  Transmission Date: 20210717
  Serious: Yes (Hospitalization, Other)
  Sender: FDA-Public Use
  Company Number: US-SHIRE-US202021368

PATIENT
  Age: 65 Year
  Sex: Female

DRUGS (1)
  1. HUMAN IMMUNOGLOBULIN; HYALURONIDASE [Suspect]
     Active Substance: HUMAN IMMUNOGLOBULIN G\HYALURONIDASE RECOMBINANT HUMAN
     Indication: PRIMARY IMMUNODEFICIENCY SYNDROME
     Dosage: 20 GRAM, UNKNOWN
     Route: 065

REACTIONS (14)
  - Malaise [Unknown]
  - Dependence on respirator [Unknown]
  - Chronic lymphocytic leukaemia recurrent [Unknown]
  - Thrombosis [Unknown]
  - Oral mucosal scar [Unknown]
  - Platelet count decreased [Unknown]
  - Cardiac disorder [Unknown]
  - Lung disorder [Unknown]
  - COVID-19 [Recovering/Resolving]
  - Pulmonary fibrosis [Unknown]
  - Pancreatic disorder [Unknown]
  - Hypoaesthesia [Unknown]
  - Alopecia [Unknown]
  - White blood cell count increased [Unknown]

NARRATIVE: CASE EVENT DATE: 20200701
